FAERS Safety Report 15522339 (Version 1)
Quarter: 2018Q4

REPORT INFORMATION
  Report Type: Spontaneous
  Country: US (occurrence: US)
  Receive Date: 20181012
  Receipt Date: 20181012
  Transmission Date: 20190205
  Serious: No
  Sender: FDA-Public Use
  Company Number: None

PATIENT
  Age: 49 Year
  Sex: Male

DRUGS (1)
  1. ISENTRESS [Suspect]
     Active Substance: RALTEGRAVIR POTASSIUM
     Indication: HIV INFECTION
     Dates: start: 201705

REACTIONS (4)
  - Hyperlipidaemia [None]
  - Renal impairment [None]
  - Therapy change [None]
  - Diabetes mellitus [None]

NARRATIVE: CASE EVENT DATE: 20181011
